FAERS Safety Report 25930149 (Version 2)
Quarter: 2025Q4

REPORT INFORMATION
  Report Type: Spontaneous
  Country: EU (occurrence: EU)
  Receive Date: 20251016
  Receipt Date: 20251021
  Transmission Date: 20260118
  Serious: Yes (Other)
  Sender: NOVARTIS
  Company Number: EU-TAKEDA-2023TUS124810

PATIENT
  Age: 57 Year
  Sex: Male

DRUGS (7)
  1. EVEROLIMUS [Suspect]
     Active Substance: EVEROLIMUS
     Indication: Hodgkin^s disease
     Dosage: 15 MG, QD, 28 DAY CYCLE
     Route: 048
     Dates: start: 202208
  2. PEMBROLIZUMAB [Suspect]
     Active Substance: PEMBROLIZUMAB
     Indication: Hodgkin^s disease nodular sclerosis recurrent
     Dosage: UNK
     Route: 065
     Dates: start: 202011, end: 202207
  3. ADCETRIS [Suspect]
     Active Substance: BRENTUXIMAB VEDOTIN
     Indication: Hodgkin^s disease
     Dosage: UNK, 1 INJECTION
     Route: 065
  4. PIOGLITAZONE [Concomitant]
     Active Substance: PIOGLITAZONE
     Indication: Hodgkin^s disease
     Dosage: 45 MG, QD
     Route: 048
     Dates: start: 202208
  5. TREOSULFAN [Concomitant]
     Active Substance: TREOSULFAN
     Indication: Hodgkin^s disease
     Dosage: 250 MG, QD
     Route: 048
     Dates: start: 202208
  6. ETORICOXIB [Concomitant]
     Active Substance: ETORICOXIB
     Indication: Hodgkin^s disease
     Dosage: 60 MG, QD
     Route: 048
     Dates: start: 202208
  7. DEXAMETHASONE [Concomitant]
     Active Substance: DEXAMETHASONE
     Indication: Hodgkin^s disease
     Dosage: 0.5 MG, QD
     Route: 048
     Dates: start: 202208

REACTIONS (5)
  - Malignant neoplasm progression [Unknown]
  - Hodgkin^s disease recurrent [Unknown]
  - Drug ineffective [Unknown]
  - Pneumonitis [Unknown]
  - Drug resistance [Unknown]

NARRATIVE: CASE EVENT DATE: 20220101
